FAERS Safety Report 10730616 (Version 1)
Quarter: 2015Q1

REPORT INFORMATION
  Report Type: Spontaneous
  Country: US (occurrence: None)
  Receive Date: 20150112
  Receipt Date: 20150112
  Transmission Date: 20150721
  Serious: No
  Sender: FDA-Public Use
  Company Number: 1478200

PATIENT
  Age: 72 Year
  Sex: Female

DRUGS (1)
  1. GAZYVA [Suspect]
     Active Substance: OBINUTUZUMAB
     Indication: PRODUCT USED FOR UNKNOWN INDICATION
     Dates: start: 20141020

REACTIONS (6)
  - Chills [None]
  - Pyrexia [None]
  - Vomiting [None]
  - Nausea [None]
  - Product use issue [None]
  - Blood pressure decreased [None]

NARRATIVE: CASE EVENT DATE: 20141020
